FAERS Safety Report 19723806 (Version 1)
Quarter: 2021Q3

REPORT INFORMATION
  Report Type: Spontaneous
  Country: PL (occurrence: PL)
  Receive Date: 20210819
  Receipt Date: 20210819
  Transmission Date: 20211014
  Serious: Yes (Other)
  Sender: FDA-Public Use
  Company Number: PL-ABBVIE-21K-129-4042598-00

PATIENT
  Age: 34 Year
  Sex: Female

DRUGS (12)
  1. VALPROIC ACID. [Suspect]
     Active Substance: VALPROIC ACID
     Indication: MYOCLONIC EPILEPSY
  2. PHENOBARBITAL. [Suspect]
     Active Substance: PHENOBARBITAL
     Indication: GENERALISED TONIC-CLONIC SEIZURE
     Route: 065
  3. LACOSAMIDE. [Suspect]
     Active Substance: LACOSAMIDE
     Indication: GENERALISED TONIC-CLONIC SEIZURE
     Route: 065
  4. LEVETIRACETAM. [Suspect]
     Active Substance: LEVETIRACETAM
     Indication: GENERALISED TONIC-CLONIC SEIZURE
     Route: 065
  5. LEVETIRACETAM. [Suspect]
     Active Substance: LEVETIRACETAM
     Indication: MYOCLONIC EPILEPSY
  6. VALPROIC ACID. [Suspect]
     Active Substance: VALPROIC ACID
     Indication: GENERALISED TONIC-CLONIC SEIZURE
     Route: 065
  7. PHENOBARBITAL. [Suspect]
     Active Substance: PHENOBARBITAL
     Indication: MYOCLONIC EPILEPSY
  8. LAMOTRIGINE. [Suspect]
     Active Substance: LAMOTRIGINE
     Indication: GENERALISED TONIC-CLONIC SEIZURE
     Route: 065
  9. TOPIRAMATE. [Suspect]
     Active Substance: TOPIRAMATE
     Indication: GENERALISED TONIC-CLONIC SEIZURE
     Route: 065
  10. TOPIRAMATE. [Suspect]
     Active Substance: TOPIRAMATE
     Indication: MYOCLONIC EPILEPSY
  11. LACOSAMIDE. [Suspect]
     Active Substance: LACOSAMIDE
     Indication: MYOCLONIC EPILEPSY
  12. LAMOTRIGINE. [Suspect]
     Active Substance: LAMOTRIGINE
     Indication: MYOCLONIC EPILEPSY

REACTIONS (7)
  - Myoclonic epilepsy [Recovered/Resolved]
  - Drug ineffective [Unknown]
  - Multiple-drug resistance [Unknown]
  - Live birth [Unknown]
  - Maternal exposure before pregnancy [Unknown]
  - Maternal exposure during pregnancy [Unknown]
  - Seizure [Recovered/Resolved]
